FAERS Safety Report 10503014 (Version 1)
Quarter: 2014Q4

REPORT INFORMATION
  Report Type: Spontaneous
  Country: US (occurrence: US)
  Receive Date: 20141007
  Receipt Date: 20141007
  Transmission Date: 20150528
  Serious: Yes (Death, Hospitalization)
  Sender: FDA-Public Use
  Company Number: PHHY2014US130154

PATIENT
  Age: 62 Year
  Sex: Female

DRUGS (11)
  1. VANCOMYCIN [Interacting]
     Active Substance: VANCOMYCIN
  2. PIPERACILLIN AND TAZOBACTAM [Interacting]
     Active Substance: PIPERACILLIN SODIUM\TAZOBACTAM SODIUM
  3. METHOTREXATE [Suspect]
     Active Substance: METHOTREXATE
     Dosage: 12.5 MG, QW
  4. METOLAZONE. [Interacting]
     Active Substance: METOLAZONE
  5. INSULIN [Interacting]
     Active Substance: INSULIN NOS
  6. SOLU-MEDROL [Interacting]
     Active Substance: METHYLPREDNISOLONE SODIUM SUCCINATE
  7. GLIPIZIDE. [Interacting]
     Active Substance: GLIPIZIDE
  8. IBUPROFEN. [Interacting]
     Active Substance: IBUPROFEN
  9. ESOMEPRAZOLE [Interacting]
     Active Substance: ESOMEPRAZOLE
  10. ACETYLSALICYLIC ACID [Interacting]
     Active Substance: ASPIRIN
  11. FUROSEMIDE. [Interacting]
     Active Substance: FUROSEMIDE

REACTIONS (15)
  - Papule [Unknown]
  - Erythema [Unknown]
  - Pain of skin [Unknown]
  - Toxicity to various agents [Unknown]
  - Skin plaque [Unknown]
  - Renal tubular necrosis [Unknown]
  - Infection [None]
  - Blister [Unknown]
  - Drug interaction [Unknown]
  - Death [Fatal]
  - Skin erosion [Unknown]
  - Hepatic enzyme increased [Unknown]
  - Psoriasis [Unknown]
  - Respiratory failure [Unknown]
  - Pancytopenia [Unknown]
